FAERS Safety Report 6339894-1 (Version None)
Quarter: 2009Q3

REPORT INFORMATION
  Report Type: 
  Country: None (occurrence: None)
  Receive Date: 20090903
  Receipt Date: 20090828
  Transmission Date: 20100115
  Serious: Yes (Hospitalization)
  Sender: FDA-Public Use
  Company Number: JP-EISAI INC.-E2090-00828-SPO-JP

PATIENT
  Age: 30 Year
  Sex: Male

DRUGS (2)
  1. EXCEGRAN [Suspect]
     Indication: EPILEPSY
     Route: 048
     Dates: start: 20050101
  2. EXCEGRAN [Suspect]
     Route: 048
     Dates: end: 20090801

REACTIONS (1)
  - NEPHROLITHIASIS [None]
